FAERS Safety Report 6937637-1 (Version None)
Quarter: 2010Q3

REPORT INFORMATION
  Report Type: 
  Country: None (occurrence: None)
  Receive Date: 20100820
  Receipt Date: 20100820
  Transmission Date: 20110219
  Serious: Yes (Disabling)
  Sender: FDA-Public Use
  Company Number: None

PATIENT
  Age: 69 Year
  Sex: Female
  Weight: 68.0396 kg

DRUGS (1)
  1. ACTONEL [Suspect]
     Indication: BONE DISORDER
     Dosage: 5 MG 1 TABLET A WK
     Dates: start: 20070101, end: 20090101

REACTIONS (3)
  - DENTAL IMPLANTATION [None]
  - IMPAIRED HEALING [None]
  - TRISMUS [None]
